FAERS Safety Report 23390382 (Version 1)
Quarter: 2024Q1

REPORT INFORMATION
  Report Type: Spontaneous
  Country: US (occurrence: US)
  Receive Date: 20240111
  Receipt Date: 20240111
  Transmission Date: 20240409
  Serious: Yes (Other)
  Sender: FDA-Public Use
  Company Number: US-SUN PHARMACEUTICAL INDUSTRIES LTD-2023R1-426728

PATIENT
  Age: 35 Year
  Sex: Female

DRUGS (1)
  1. AMPHETAMINE [Suspect]
     Active Substance: AMPHETAMINE
     Indication: Attention deficit hyperactivity disorder
     Dosage: UNK
     Route: 065

REACTIONS (1)
  - Pulmonary vascular disorder [Recovered/Resolved]
